FAERS Safety Report 9114924 (Version 7)
Quarter: 2014Q3

REPORT INFORMATION
  Report Type: Spontaneous
  Country: US (occurrence: US)
  Receive Date: 20130128
  Receipt Date: 20140801
  Transmission Date: 20150326
  Serious: Yes (Hospitalization)
  Sender: FDA-Public Use
  Company Number: US-009507513-1301USA011357

PATIENT
  Sex: Female
  Weight: 145.13 kg

DRUGS (3)
  1. NUVARING [Suspect]
     Active Substance: ETHINYL ESTRADIOL\ETONOGESTREL
     Dosage: UNK
     Route: 067
     Dates: start: 201308
  2. NUVARING [Suspect]
     Active Substance: ETHINYL ESTRADIOL\ETONOGESTREL
     Indication: CONTRACEPTION
     Dosage: UNK
     Route: 067
     Dates: start: 200910, end: 20110225
  3. NUVARING [Suspect]
     Active Substance: ETHINYL ESTRADIOL\ETONOGESTREL
     Dosage: UNK
     Route: 067
     Dates: start: 20120411, end: 20120608

REACTIONS (11)
  - Breast enlargement [Unknown]
  - Hordeolum [Unknown]
  - Tooth extraction [Unknown]
  - Cellulitis [Unknown]
  - Deep vein thrombosis [Unknown]
  - Anaemia [Unknown]
  - Scoliosis [Not Recovered/Not Resolved]
  - Mammogram abnormal [Unknown]
  - Joint dislocation [Unknown]
  - Body tinea [Unknown]
  - Hyperlipidaemia [Unknown]

NARRATIVE: CASE EVENT DATE: 20091007
